FAERS Safety Report 5071686-6 (Version None)
Quarter: 2006Q3

REPORT INFORMATION
  Report Type: 
  Country: None (occurrence: None)
  Receive Date: 20060801
  Receipt Date: 20060720
  Transmission Date: 20061208
  Serious: Yes (Life-Threatening, Hospitalization)
  Sender: FDA-Public Use
  Company Number: 2006RL000184

PATIENT
  Age: 64 Year
  Sex: Male

DRUGS (7)
  1. OMACOR [Suspect]
     Indication: DRUG USE FOR UNKNOWN INDICATION
     Dosage: 1000 MG; QD; PO
     Route: 048
     Dates: start: 20040801, end: 20051101
  2. ASPIRIN [Suspect]
     Indication: CORONARY ARTERY BYPASS
     Dosage: 100 MG; QD; PO
     Route: 048
     Dates: start: 20021101
  3. SIMVASTATIN [Concomitant]
  4. BISOPROLOL FUMARATE [Concomitant]
  5. HYDROCHLOROTHIAZIDE W/TRIAMTERENE [Concomitant]
  6. LEVOTHYROXINE SODIUM [Concomitant]
  7. TAMSULOSIN HCL [Concomitant]

REACTIONS (3)
  - CEREBRAL HAEMORRHAGE [None]
  - EXTRADURAL HAEMATOMA [None]
  - INTRACRANIAL PRESSURE INCREASED [None]
